FAERS Safety Report 12657572 (Version 1)
Quarter: 2016Q3

REPORT INFORMATION
  Report Type: Spontaneous
  Country: US (occurrence: US)
  Receive Date: 20160816
  Receipt Date: 20160816
  Transmission Date: 20161109
  Serious: Yes (Hospitalization)
  Sender: FDA-Public Use
  Company Number: US-BAUSCH-BL-2016-019410

PATIENT
  Sex: Female
  Weight: 49.94 kg

DRUGS (4)
  1. XIFAXAN [Suspect]
     Active Substance: RIFAXIMIN
     Indication: BACTERIAL INFECTION
     Dosage: ONE-HALF TABLET ONCE A DAY
     Route: 048
     Dates: start: 2016
  2. XIFAXAN [Suspect]
     Active Substance: RIFAXIMIN
     Indication: HEPATIC ENCEPHALOPATHY
     Route: 048
     Dates: start: 2016
  3. XIFAXAN [Suspect]
     Active Substance: RIFAXIMIN
     Route: 048
     Dates: start: 2016
  4. XIFAXAN [Suspect]
     Active Substance: RIFAXIMIN
     Indication: CRYOGLOBULINAEMIA
     Route: 048
     Dates: start: 2016

REACTIONS (6)
  - Hepatic encephalopathy [Recovering/Resolving]
  - Off label use [Recovered/Resolved]
  - Memory impairment [Recovering/Resolving]
  - Ammonia abnormal [Recovering/Resolving]
  - Pyrexia [Recovered/Resolved]
  - Vomiting [Recovering/Resolving]

NARRATIVE: CASE EVENT DATE: 2016
